FAERS Safety Report 20525787 (Version 1)
Quarter: 2022Q1

REPORT INFORMATION
  Report Type: Spontaneous
  Country: US (occurrence: None)
  Receive Date: 20220225
  Receipt Date: 20220225
  Transmission Date: 20220423
  Serious: Yes (Other)
  Sender: FDA-Public Use
  Company Number: None

PATIENT
  Age: 55 Year
  Sex: Female
  Weight: 44.1 kg

DRUGS (17)
  1. TISAGENLECLEUCEL [Suspect]
     Active Substance: TISAGENLECLEUCEL
     Indication: Primary mediastinal large B-cell lymphoma
     Dosage: OTHER FREQUENCY : ONCE;?
     Route: 042
     Dates: start: 20181221, end: 20181221
  2. ACETAMINOPHEN [Concomitant]
     Active Substance: ACETAMINOPHEN
  3. ACYCLOVIR [Concomitant]
     Active Substance: ACYCLOVIR
  4. AZITHROMYCIN [Concomitant]
     Active Substance: AZITHROMYCIN
  5. CIPROFLOXACIN [Concomitant]
     Active Substance: CIPROFLOXACIN
  6. DIAZEPAM [Concomitant]
     Active Substance: DIAZEPAM
  7. ESCITALOPRAM [Concomitant]
     Active Substance: ESCITALOPRAM OXALATE
  8. ESTRADIOL [Concomitant]
     Active Substance: ESTRADIOL
  9. GABAPENTIN [Concomitant]
     Active Substance: GABAPENTIN
  10. HUMAN IMMUNOGLOBULIN G [Concomitant]
     Active Substance: HUMAN IMMUNOGLOBULIN G
  11. LEVETIRACETAM [Concomitant]
     Active Substance: LEVETIRACETAM
  12. LEVOTHYROXINE [Concomitant]
     Active Substance: LEVOTHYROXINE
  13. LORAZEPAM [Concomitant]
     Active Substance: LORAZEPAM
  14. ONDANSETRON [Concomitant]
     Active Substance: ONDANSETRON
  15. OXYBUTYNIN [Concomitant]
     Active Substance: OXYBUTYNIN
  16. OXYCODONE [Concomitant]
     Active Substance: OXYCODONE
  17. RUXOLITINIB [Concomitant]
     Active Substance: RUXOLITINIB

REACTIONS (5)
  - Positron emission tomogram abnormal [None]
  - Gastroenteritis norovirus [None]
  - Pancytopenia [None]
  - Marrow hyperplasia [None]
  - Disease progression [None]

NARRATIVE: CASE EVENT DATE: 20211118
